FAERS Safety Report 11092636 (Version 1)
Quarter: 2015Q2

REPORT INFORMATION
  Report Type: Spontaneous
  Country: US (occurrence: None)
  Receive Date: 20150505
  Receipt Date: 20150505
  Transmission Date: 20150821
  Serious: No
  Sender: FDA-Public Use
  Company Number: None

PATIENT
  Age: 83 Year
  Sex: Female
  Weight: 57.61 kg

DRUGS (11)
  1. TYLENOL-EXTRA STRENGTH [Concomitant]
  2. CENTRUM SILVER [Concomitant]
     Active Substance: VITAMINS
  3. AREDS 2 [Concomitant]
  4. LISINOPRIL. [Concomitant]
     Active Substance: LISINOPRIL
  5. AMLODIPINE BESYLATE. [Concomitant]
     Active Substance: AMLODIPINE BESYLATE
  6. MAGNESIUM [Concomitant]
     Active Substance: MAGNESIUM
  7. LEVOTHYROXINE [Concomitant]
     Active Substance: LEVOTHYROXINE
  8. VITAMIN D3 [Concomitant]
     Active Substance: CHOLECALCIFEROL
  9. CLINDAMYCIN [Suspect]
     Active Substance: CLINDAMYCIN\CLINDAMYCIN PHOSPHATE
     Indication: PHARYNGITIS
     Dosage: STRENGTH:  300 MG CAPSULES, QUANTITY: 21 CAPSULES, FREQUENCY:  1 CAPSULE BY MOUTH THREE TIMES DAILY, ROUTE: BY MOUTH
     Route: 048
     Dates: start: 20150411, end: 20150415
  10. CARVEDILOL. [Concomitant]
     Active Substance: CARVEDILOL
  11. FISH OIL [Concomitant]
     Active Substance: FISH OIL

REACTIONS (3)
  - Oropharyngeal pain [None]
  - Dysphagia [None]
  - Headache [None]

NARRATIVE: CASE EVENT DATE: 20150412
